FAERS Safety Report 18596793 (Version 2)
Quarter: 2020Q4

REPORT INFORMATION
  Report Type: Report from Study
  Country: JO (occurrence: JO)
  Receive Date: 20201209
  Receipt Date: 20201217
  Transmission Date: 20210114
  Serious: Yes (Hospitalization)
  Sender: FDA-Public Use
  Company Number: JO-PFIZER INC-2020468238

PATIENT
  Age: 61 Year
  Sex: Male
  Weight: 67 kg

DRUGS (8)
  1. AVELUMAB [Suspect]
     Active Substance: AVELUMAB
     Dosage: 650 MG
     Route: 042
     Dates: start: 20201109
  2. OXALIPLATIN. [Suspect]
     Active Substance: OXALIPLATIN
     Dosage: 144 MG
     Route: 042
     Dates: start: 20201109
  3. CALCIUM FOLINATE [Suspect]
     Active Substance: LEUCOVORIN CALCIUM
     Indication: RECTAL ADENOCARCINOMA
     Dosage: 680 MG
     Route: 042
     Dates: start: 20201012
  4. FLUOROURACIL. [Suspect]
     Active Substance: FLUOROURACIL
     Indication: RECTAL ADENOCARCINOMA
     Dosage: 2040 MG, DAILY (TOTAL DOSE 4080 MG/48 HOURS)
     Route: 042
     Dates: start: 20201012
  5. OXALIPLATIN. [Suspect]
     Active Substance: OXALIPLATIN
     Indication: RECTAL ADENOCARCINOMA
     Dosage: 144 MG
     Route: 042
     Dates: start: 20201012
  6. CALCIUM FOLINATE [Suspect]
     Active Substance: LEUCOVORIN CALCIUM
     Dosage: 680 MG
     Route: 042
     Dates: start: 20201109
  7. FLUOROURACIL. [Suspect]
     Active Substance: FLUOROURACIL
     Dosage: 2040 MG, DAILY (TOTAL DOSE 4080 MG/48 HOURS)
     Route: 042
     Dates: start: 20201109
  8. AVELUMAB [Suspect]
     Active Substance: AVELUMAB
     Indication: RECTAL ADENOCARCINOMA
     Dosage: 680 MG
     Route: 042
     Dates: start: 20201012

REACTIONS (1)
  - Rash maculo-papular [Recovered/Resolved]

NARRATIVE: CASE EVENT DATE: 20201118
